FAERS Safety Report 9973899 (Version 1)
Quarter: 2014Q1

REPORT INFORMATION
  Report Type: Spontaneous
  Country: US (occurrence: US)
  Receive Date: 20140306
  Receipt Date: 20140306
  Transmission Date: 20141002
  Serious: No
  Sender: FDA-Public Use
  Company Number: US-B.I. PHARMACEUTICALS,INC./RIDGEFIELD-2014-BI-08342BP

PATIENT
  Age: 76 Year
  Sex: Female

DRUGS (6)
  1. PRADAXA [Suspect]
     Indication: ATRIAL FIBRILLATION
     Dosage: 300 MG
     Route: 048
     Dates: start: 2012
  2. SOTALOL [Concomitant]
     Route: 048
  3. PREMARIN [Concomitant]
     Route: 048
  4. DIGOXIN [Concomitant]
     Route: 048
  5. SYNTHROID [Concomitant]
     Indication: HYPOTHYROIDISM
     Route: 048
  6. PREDNISONE [Concomitant]
     Route: 048

REACTIONS (1)
  - Heart rate decreased [Recovered/Resolved]
